FAERS Safety Report 11883657 (Version 2)
Quarter: 2016Q1

REPORT INFORMATION
  Report Type: Spontaneous
  Country: GB (occurrence: GB)
  Receive Date: 20160101
  Receipt Date: 20160106
  Transmission Date: 20160526
  Serious: Yes (Hospitalization, Other)
  Sender: FDA-Public Use
  Company Number: GB-ASTRAZENECA-2015SF30757

PATIENT
  Age: 68 Year
  Sex: Male

DRUGS (7)
  1. BISOPROLOL [Concomitant]
     Active Substance: BISOPROLOL
  2. LOPERAMIDE [Concomitant]
     Active Substance: LOPERAMIDE
  3. ATORVASTATIN [Concomitant]
     Active Substance: ATORVASTATIN
  4. CLOPIDOGREL [Concomitant]
     Active Substance: CLOPIDOGREL BISULFATE
  5. ISMN [Concomitant]
     Active Substance: ISOSORBIDE MONONITRATE
  6. ESOMEPRAZOLE MAGNESIUM. [Suspect]
     Active Substance: ESOMEPRAZOLE MAGNESIUM
     Indication: GASTROOESOPHAGEAL REFLUX DISEASE
     Route: 048
  7. AMITRIPTYLINE [Concomitant]
     Active Substance: AMITRIPTYLINE

REACTIONS (2)
  - Hepatitis cholestatic [Recovered/Resolved]
  - Biliary sepsis [Unknown]
